FAERS Safety Report 20573822 (Version 1)
Quarter: 2022Q1

REPORT INFORMATION
  Report Type: Spontaneous
  Country: GB (occurrence: GB)
  Receive Date: 20220309
  Receipt Date: 20220309
  Transmission Date: 20220424
  Serious: No
  Sender: FDA-Public Use
  Company Number: GB-PFIZER INC-202101561428

PATIENT
  Age: 55 Year
  Sex: Male

DRUGS (2)
  1. BAVENCIO [Suspect]
     Active Substance: AVELUMAB
     Indication: Product used for unknown indication
     Dosage: UNK
  2. AXITINIB [Suspect]
     Active Substance: AXITINIB
     Indication: Product used for unknown indication
     Dosage: UNK

REACTIONS (5)
  - Hepatic function abnormal [Unknown]
  - Colitis [Unknown]
  - Diarrhoea [Unknown]
  - Transaminases increased [Unknown]
  - Fatigue [Unknown]
